FAERS Safety Report 7020884-0 (Version None)
Quarter: 2010Q3

REPORT INFORMATION
  Report Type: 
  Country: None (occurrence: None)
  Receive Date: 20100929
  Receipt Date: 20100922
  Transmission Date: 20110219
  Serious: Yes (Other)
  Sender: FDA-Public Use
  Company Number: US-SANOFI-AVENTIS-2010SA057864

PATIENT
  Sex: Female

DRUGS (3)
  1. SOLOSTAR [Suspect]
     Route: 058
     Dates: start: 20091101
  2. LANTUS [Suspect]
     Route: 058
     Dates: start: 20091101
  3. NOVOLOG [Concomitant]

REACTIONS (4)
  - BLOOD GLUCOSE INCREASED [None]
  - INJECTION SITE NODULE [None]
  - PANCREATIC CARCINOMA [None]
  - PRODUCT QUALITY ISSUE [None]
